APPROVED DRUG PRODUCT: METFORMIN HYDROCHLORIDE
Active Ingredient: METFORMIN HYDROCHLORIDE
Strength: 500MG
Dosage Form/Route: TABLET;ORAL
Application: A075961 | Product #001
Applicant: WATSON LABORATORIES INC FLORIDA
Approved: Jan 25, 2002 | RLD: No | RS: No | Type: DISCN